FAERS Safety Report 25941424 (Version 1)
Quarter: 2025Q4

REPORT INFORMATION
  Report Type: Spontaneous
  Country: CN (occurrence: CN)
  Receive Date: 20251020
  Receipt Date: 20251020
  Transmission Date: 20260117
  Serious: Yes (Other)
  Sender: MERCK SHARP & DOHME LLC
  Company Number: CN-009507513-2338790

PATIENT
  Age: 58 Year
  Sex: Male
  Weight: 61.5 kg

DRUGS (12)
  1. PREVYMIS [Suspect]
     Active Substance: LETERMOVIR
     Indication: Acute myeloid leukaemia
     Dosage: 240MG, ONCE DAILY
     Route: 048
     Dates: start: 202509, end: 20250926
  2. MYCOPHENOLATE MOFETIL [Concomitant]
     Active Substance: MYCOPHENOLATE MOFETIL
  3. RIVAROXABAN [Concomitant]
     Active Substance: RIVAROXABAN
  4. GANCICLOVIR [Concomitant]
     Active Substance: GANCICLOVIR
  5. SULFAMETHOXAZOLE [Concomitant]
     Active Substance: SULFAMETHOXAZOLE
  6. BICYCLOL [Concomitant]
     Active Substance: BICYCLOL
  7. Compound Glycyrrhizin [Concomitant]
  8. PIPERAZINE BISFERULATE [Concomitant]
     Active Substance: PIPERAZINE BISFERULATE
  9. LEUCOGEN [Concomitant]
     Active Substance: LEUCOGEN
  10. METHYLPREDNISOLONE [Concomitant]
     Active Substance: METHYLPREDNISOLONE
  11. ACETYLCYSTEINE [Concomitant]
     Active Substance: ACETYLCYSTEINE
  12. ZITHROMAX [Suspect]
     Active Substance: AZITHROMYCIN DIHYDRATE
     Indication: Anti-infective therapy
     Dosage: 0.25G, ONCE DAILY
     Route: 048
     Dates: start: 20250818, end: 20250926

REACTIONS (3)
  - Electrocardiogram QT prolonged [Recovered/Resolved]
  - Drug interaction [Unknown]
  - Product use in unapproved indication [Unknown]

NARRATIVE: CASE EVENT DATE: 20250901
